FAERS Safety Report 12229617 (Version 2)
Quarter: 2016Q2

REPORT INFORMATION
  Report Type: Spontaneous
  Country: US (occurrence: US)
  Receive Date: 20160401
  Receipt Date: 20160505
  Transmission Date: 20160815
  Serious: Yes (Hospitalization, Other)
  Sender: FDA-Public Use
  Company Number: US-JNJFOC-20160306113

PATIENT
  Age: 44 Year
  Sex: Male

DRUGS (9)
  1. XARELTO [Suspect]
     Active Substance: RIVAROXABAN
     Indication: KNEE ARTHROPLASTY
     Route: 048
     Dates: start: 20150510, end: 201508
  2. LEVOTHYROXIN [Concomitant]
     Active Substance: LEVOTHYROXINE
     Indication: PRODUCT USED FOR UNKNOWN INDICATION
     Route: 065
     Dates: start: 2001, end: 2015
  3. LISINOPRIL. [Concomitant]
     Active Substance: LISINOPRIL
     Indication: PRODUCT USED FOR UNKNOWN INDICATION
     Route: 065
     Dates: start: 2005, end: 2015
  4. XARELTO [Suspect]
     Active Substance: RIVAROXABAN
     Indication: THROMBOSIS PROPHYLAXIS
     Route: 048
     Dates: start: 20150510, end: 201508
  5. XARELTO [Suspect]
     Active Substance: RIVAROXABAN
     Indication: PULMONARY EMBOLISM
     Route: 048
     Dates: start: 20150510, end: 201508
  6. XARELTO [Suspect]
     Active Substance: RIVAROXABAN
     Indication: THROMBOSIS PROPHYLAXIS
     Dosage: DRUG WAS GIVEN IN VARYING DOSES OF 10MG, 15MG AND 20MG
     Route: 048
     Dates: start: 20150410, end: 20150510
  7. XARELTO [Suspect]
     Active Substance: RIVAROXABAN
     Indication: PULMONARY EMBOLISM
     Dosage: DRUG WAS GIVEN IN VARYING DOSES OF 10MG, 15MG AND 20MG
     Route: 048
     Dates: start: 20150410, end: 20150510
  8. HYDROCODONE [Concomitant]
     Active Substance: HYDROCODONE
     Indication: PRODUCT USED FOR UNKNOWN INDICATION
     Route: 065
     Dates: start: 2005, end: 2015
  9. XARELTO [Suspect]
     Active Substance: RIVAROXABAN
     Indication: KNEE ARTHROPLASTY
     Dosage: DRUG WAS GIVEN IN VARYING DOSES OF 10MG, 15MG AND 20MG
     Route: 048
     Dates: start: 20150410, end: 20150510

REACTIONS (4)
  - Subdural haematoma [Not Recovered/Not Resolved]
  - Internal haemorrhage [Unknown]
  - Pulmonary embolism [Recovering/Resolving]
  - Haemarthrosis [Unknown]

NARRATIVE: CASE EVENT DATE: 20150510
